FAERS Safety Report 17663716 (Version 1)
Quarter: 2020Q2

REPORT INFORMATION
  Report Type: Spontaneous
  Country: CA (occurrence: CA)
  Receive Date: 20200414
  Receipt Date: 20200414
  Transmission Date: 20200713
  Serious: Yes (Other)
  Sender: FDA-Public Use
  Company Number: CA-009507513-2004CAN002943

PATIENT
  Age: 69 Year
  Sex: Male

DRUGS (7)
  1. RISPERIDONE. [Suspect]
     Active Substance: RISPERIDONE
     Indication: DEMENTIA WITH LEWY BODIES
     Dosage: UNK
     Route: 065
  2. LORAZEPAM. [Suspect]
     Active Substance: LORAZEPAM
     Indication: CONFUSIONAL STATE
     Dosage: DOSAGE FORM NOT SPECIFIED
     Route: 065
  3. RIVASTIGMINE. [Suspect]
     Active Substance: RIVASTIGMINE
     Indication: PARKINSONISM
     Dosage: 1.5 MILLIGRAM, 1 EVERY 1 DAYS
     Route: 065
  4. SINEMET [Suspect]
     Active Substance: CARBIDOPA\LEVODOPA
     Indication: PARKINSONISM
     Dosage: 1.5 DOSAGE FORM, 3 EVERY 1 DAYS
     Route: 065
  5. RIVASTIGMINE. [Suspect]
     Active Substance: RIVASTIGMINE
     Indication: DEMENTIA WITH LEWY BODIES
     Dosage: 1.5 MILLIGRAM, 2 EVERY 1 DAYS
     Route: 065
  6. SINEMET [Suspect]
     Active Substance: CARBIDOPA\LEVODOPA
     Indication: DEMENTIA WITH LEWY BODIES
     Dosage: 1.0 DOSAGE FORMS, 3 EVERY 1 DAYS
     Route: 065
  7. RISPERIDONE. [Suspect]
     Active Substance: RISPERIDONE
     Indication: PARKINSONISM
     Dosage: 0.5 MILLIGRAM, 3 EVERY 1 DAYS, DOSAGE FORM NOT SPECIFIED
     Route: 065

REACTIONS (6)
  - Hallucination [Unknown]
  - Anal incontinence [Unknown]
  - Urinary incontinence [Unknown]
  - Tremor [Unknown]
  - Concomitant disease aggravated [Unknown]
  - Drug ineffective [Unknown]
